FAERS Safety Report 6202687-X (Version None)
Quarter: 2009Q2

REPORT INFORMATION
  Report Type: 
  Country: None (occurrence: None)
  Receive Date: 20090526
  Receipt Date: 20090521
  Transmission Date: 20091009
  Serious: Yes (Death)
  Sender: FDA-Public Use
  Company Number: ES-WYE-G03720809

PATIENT
  Age: 76 Year
  Sex: Female

DRUGS (7)
  1. TAZOCEL [Suspect]
     Indication: ABDOMINAL INFECTION
     Route: 042
     Dates: start: 20090226, end: 20090313
  2. PARACETAMOL [Suspect]
     Indication: PAIN
     Route: 042
     Dates: start: 20090226, end: 20090331
  3. PRIMPERAN [Suspect]
     Indication: VOMITING
     Dosage: UNKNOWN
     Dates: start: 20090226, end: 20090309
  4. CYMBALTA [Suspect]
     Indication: DEPRESSION
     Route: 048
     Dates: start: 20090228, end: 20090305
  5. INYESPRIN [Suspect]
     Indication: PAIN
     Route: 042
     Dates: start: 20090228, end: 20090320
  6. PANTOPRAZOLE SODIUM [Suspect]
     Indication: PROPHYLAXIS
     Route: 042
     Dates: start: 20090226, end: 20090331
  7. ANAFRANIL [Suspect]
     Indication: DEPRESSION
     Route: 042
     Dates: start: 20090305

REACTIONS (1)
  - PANCYTOPENIA [None]
